FAERS Safety Report 12966085 (Version 1)
Quarter: 2016Q4

REPORT INFORMATION
  Report Type: Spontaneous
  Country: US (occurrence: US)
  Receive Date: 20161117
  Receipt Date: 20161117
  Transmission Date: 20170207
  Serious: Yes (Hospitalization)
  Sender: FDA-Public Use
  Company Number: None

PATIENT
  Age: 37 Year
  Sex: Male

DRUGS (3)
  1. MORPHINE [Suspect]
     Active Substance: MORPHINE
  2. THC [Concomitant]
     Active Substance: DRONABINOL
  3. FENTANYL. [Suspect]
     Active Substance: FENTANYL
     Route: 048
     Dates: start: 20161002, end: 20161002

REACTIONS (4)
  - Back pain [None]
  - Pain [None]
  - Drug abuse [None]
  - Blood creatine phosphokinase increased [None]

NARRATIVE: CASE EVENT DATE: 20161003
